FAERS Safety Report 19473003 (Version 1)
Quarter: 2021Q2

REPORT INFORMATION
  Report Type: Report from Study
  Country: DO (occurrence: DO)
  Receive Date: 20210629
  Receipt Date: 20210629
  Transmission Date: 20210717
  Serious: Yes (Hospitalization)
  Sender: FDA-Public Use
  Company Number: NVSC2021DO120924

PATIENT
  Age: 40 Year
  Sex: Female

DRUGS (1)
  1. SCAPHO [Suspect]
     Active Substance: SECUKINUMAB
     Indication: ANKYLOSING SPONDYLITIS
     Dosage: 150 MG, QMO
     Route: 058
     Dates: start: 20210204

REACTIONS (5)
  - Malaise [Not Recovered/Not Resolved]
  - Platelet count increased [Not Recovered/Not Resolved]
  - Pain [Not Recovered/Not Resolved]
  - Myelitis [Unknown]
  - Polymerase chain reaction [Not Recovered/Not Resolved]

NARRATIVE: CASE EVENT DATE: 20210524
